FAERS Safety Report 5572519-1 (Version None)
Quarter: 2007Q4

REPORT INFORMATION
  Report Type: 
  Country: None (occurrence: None)
  Receive Date: 20071219
  Receipt Date: 20071204
  Transmission Date: 20080405
  Serious: Yes (Hospitalization)
  Sender: FDA-Public Use
  Company Number: 2007EU002685

PATIENT
  Age: 82 Year
  Sex: Male

DRUGS (7)
  1. VESICARE [Suspect]
     Indication: HYPERTONIC BLADDER
     Dosage: 10 MG/ D, 5 MG/D
  2. DECAPEPTYL (TRIPTORELIN EMBONATE) [Concomitant]
  3. ANDROCUR (CYPROTERONE ACETATE) [Concomitant]
  4. FOSAMAX [Concomitant]
  5. AMLODIPINE BESYLATE [Concomitant]
  6. CRESTOR [Concomitant]
  7. SOTALOL HCL [Concomitant]

REACTIONS (3)
  - CONFUSIONAL STATE [None]
  - SPEECH DISORDER [None]
  - URINARY INCONTINENCE [None]
